FAERS Safety Report 8928599 (Version 1)
Quarter: 2012Q4

REPORT INFORMATION
  Report Type: 
  Country: JP (occurrence: JP)
  Receive Date: 20121127
  Receipt Date: 20121127
  Transmission Date: 20130627
  Serious: Yes (Hospitalization, Other)
  Sender: FDA-Public Use
  Company Number: JP-ROCHE-GNE316363

PATIENT
  Age: 70 Year
  Sex: Male

DRUGS (2)
  1. OMALIZUMAB [Suspect]
     Indication: ASTHMA
     Dosage: 300 mg, Q2W
     Route: 058
     Dates: start: 20090410, end: 20110315
  2. OMALIZUMAB [Suspect]
     Dosage: 300 mg, bid
     Route: 058

REACTIONS (4)
  - Renal failure acute [Not Recovered/Not Resolved]
  - Vasculitis necrotising [Not Recovered/Not Resolved]
  - Road traffic accident [Unknown]
  - Sternal fracture [Unknown]
